FAERS Safety Report 17023403 (Version 1)
Quarter: 2019Q4

REPORT INFORMATION
  Report Type: Report from Study
  Country: US (occurrence: US)
  Receive Date: 20191112
  Receipt Date: 20191112
  Transmission Date: 20200122
  Serious: No
  Sender: FDA-Public Use
  Company Number: NVSC2019US033362

PATIENT

DRUGS (1)
  1. COSENTYX [Suspect]
     Active Substance: SECUKINUMAB
     Indication: PSORIATIC ARTHROPATHY
     Dosage: 300 MG, QW (QW FOR 5 WEEKS THEN QW)
     Route: 058
     Dates: start: 20190710

REACTIONS (3)
  - Musculoskeletal stiffness [Unknown]
  - Inflammation [Unknown]
  - Pain in extremity [Unknown]
